FAERS Safety Report 7169995-X (Version None)
Quarter: 2010Q4

REPORT INFORMATION
  Report Type: 
  Country: None (occurrence: None)
  Receive Date: 20101217
  Receipt Date: 20101206
  Transmission Date: 20110411
  Serious: Yes (Other)
  Sender: FDA-Public Use
  Company Number: CA-TYCO HEALTHCARE/MALLINCKRODT-T201002410

PATIENT

DRUGS (1)
  1. PENNSAID [Suspect]
     Indication: OSTEOARTHRITIS
     Dosage: UNK

REACTIONS (1)
  - COLITIS COLLAGENOUS [None]
